FAERS Safety Report 24990251 (Version 1)
Quarter: 2025Q1

REPORT INFORMATION
  Report Type: Spontaneous
  Country: US (occurrence: US)
  Receive Date: 20250220
  Receipt Date: 20250220
  Transmission Date: 20250408
  Serious: Yes (Other)
  Sender: PARATEK PHARMACEUTICALS
  Company Number: US-PARATEK PHARMACEUTICALS, INC.-2025PTK00184

PATIENT
  Sex: Male

DRUGS (1)
  1. OMADACYCLINE [Suspect]
     Active Substance: OMADACYCLINE

REACTIONS (5)
  - Tracheal stenosis [Unknown]
  - Deafness unilateral [Unknown]
  - Atrial fibrillation [Unknown]
  - Mycobacterium chelonae infection [Unknown]
  - Chronic sinusitis [Unknown]
